FAERS Safety Report 15631279 (Version 2)
Quarter: 2019Q1

REPORT INFORMATION
  Report Type: Report from Study
  Country: None (occurrence: US)
  Receive Date: 20181119
  Receipt Date: 20190314
  Transmission Date: 20190417
  Serious: Yes (Hospitalization, Other)
  Sender: FDA-Public Use
  Company Number: US-ABBVIE-18K-163-2531594-00

PATIENT
  Age: 55 Year
  Sex: Male
  Weight: 108.51 kg

DRUGS (2)
  1. PREDNISONE. [Concomitant]
     Active Substance: PREDNISONE
     Indication: RHEUMATOID ARTHRITIS
  2. HUMIRA [Suspect]
     Active Substance: ADALIMUMAB
     Indication: RHEUMATOID ARTHRITIS
     Route: 058
     Dates: start: 201611, end: 20171006

REACTIONS (13)
  - Dizziness [Not Recovered/Not Resolved]
  - Chronic kidney disease [Unknown]
  - Hypophagia [Recovered/Resolved]
  - Rib fracture [Not Recovered/Not Resolved]
  - Sinusitis [Not Recovered/Not Resolved]
  - Lung infection [Not Recovered/Not Resolved]
  - Pneumonia [Recovering/Resolving]
  - Fluid intake reduced [Recovered/Resolved]
  - Rheumatoid arthritis [Not Recovered/Not Resolved]
  - Acute kidney injury [Recovered/Resolved]
  - Atrial fibrillation [Not Recovered/Not Resolved]
  - Total lung capacity decreased [Not Recovered/Not Resolved]
  - Pericardial effusion [Unknown]

NARRATIVE: CASE EVENT DATE: 201712
